FAERS Safety Report 8980113 (Version 2)
Quarter: 2013Q1

REPORT INFORMATION
  Report Type: Spontaneous
  Country: DE (occurrence: DE)
  Receive Date: 20121221
  Receipt Date: 20130215
  Transmission Date: 20140127
  Serious: Yes (Death, Hospitalization)
  Sender: FDA-Public Use
  Company Number: PHHY2012DE118005

PATIENT
  Sex: Female

DRUGS (6)
  1. AFINITOR [Suspect]
     Indication: BREAST CANCER METASTATIC
     Dosage: 10 MG, DAILY
     Route: 048
     Dates: start: 20120927, end: 20121108
  2. EXEMESTAN [Concomitant]
     Indication: BREAST CANCER METASTATIC
     Dosage: 25 MG, DAILY
     Route: 048
     Dates: start: 20120924, end: 20121108
  3. EPIRUBICIN [Concomitant]
     Dates: start: 201112
  4. LOPERAMIDE [Concomitant]
     Indication: DIARRHOEA
     Dates: start: 20121102, end: 20121116
  5. METOCLOPRAMIDE [Concomitant]
     Indication: NAUSEA
     Dates: start: 20121001, end: 20121108
  6. XGEVA [Concomitant]

REACTIONS (20)
  - Organ failure [Fatal]
  - Sciatica [Unknown]
  - General physical health deterioration [Unknown]
  - Asthenia [Unknown]
  - Decreased appetite [Unknown]
  - Rectal cancer [Unknown]
  - Second primary malignancy [Unknown]
  - Breast cancer [Unknown]
  - Malignant neoplasm progression [Unknown]
  - Ovarian cancer [Unknown]
  - Metastases to peritoneum [Unknown]
  - Metastases to liver [Unknown]
  - Blood sodium decreased [Unknown]
  - Drug intolerance [Unknown]
  - Nitrite urine present [Unknown]
  - C-reactive protein increased [Unknown]
  - Leukocytosis [Unknown]
  - Blood alkaline phosphatase increased [Unknown]
  - Blood potassium decreased [Unknown]
  - Blood creatinine increased [Unknown]
